FAERS Safety Report 6595907-3 (Version None)
Quarter: 2010Q1

REPORT INFORMATION
  Report Type: 
  Country: None (occurrence: None)
  Receive Date: 20100219
  Receipt Date: 20100219
  Transmission Date: 20100710
  Serious: No
  Sender: FDA-Public Use
  Company Number: None

PATIENT
  Age: 80 Year
  Sex: Female
  Weight: 47.6277 kg

DRUGS (1)
  1. BONIVA [Suspect]
     Indication: OSTEOPOROSIS
     Dosage: 1 MONTHLY
     Dates: start: 20090131

REACTIONS (4)
  - ARTHRALGIA [None]
  - DYSSTASIA [None]
  - MYALGIA [None]
  - PAIN IN EXTREMITY [None]
